FAERS Safety Report 10341184 (Version 1)
Quarter: 2014Q3

REPORT INFORMATION
  Report Type: Spontaneous
  Country: US (occurrence: US)
  Receive Date: 20140724
  Receipt Date: 20140724
  Transmission Date: 20150326
  Serious: Yes (Other)
  Sender: FDA-Public Use
  Company Number: PHHY2014US089592

PATIENT
  Age: 52 Year
  Sex: Female

DRUGS (1)
  1. METRONIDAZOLE. [Suspect]
     Active Substance: METRONIDAZOLE
     Indication: CHOLANGITIS

REACTIONS (6)
  - Confusional state [Recovering/Resolving]
  - Toxic encephalopathy [Recovered/Resolved]
  - Hallucination [Recovering/Resolving]
  - White matter lesion [Recovered/Resolved]
  - Toxicity to various agents [Unknown]
  - Psychotic behaviour [Recovering/Resolving]
